FAERS Safety Report 8476641-1 (Version None)
Quarter: 2012Q2

REPORT INFORMATION
  Report Type: 
  Country: None (occurrence: None)
  Receive Date: 20120628
  Receipt Date: 20120625
  Transmission Date: 20120825
  Serious: Yes (Other)
  Sender: FDA-Public Use
  Company Number: FI-PFIZER INC-2012126521

PATIENT
  Age: 44 Year
  Sex: Male
  Weight: 119 kg

DRUGS (1)
  1. LYRICA [Suspect]
     Indication: BACK DISORDER
     Dosage: 75 MG, 2X/DAY
     Dates: start: 20120410, end: 20120511

REACTIONS (2)
  - MYOPATHY [None]
  - HYPOTHYROIDISM [None]
